FAERS Safety Report 4900822-4 (Version None)
Quarter: 2006Q1

REPORT INFORMATION
  Report Type: 
  Country: None (occurrence: None)
  Receive Date: 20060201
  Receipt Date: 20060117
  Transmission Date: 20060701
  Serious: Yes (Death)
  Sender: FDA-Public Use
  Company Number: HU200601002216

PATIENT
  Age: 28 Year
  Sex: Male

DRUGS (4)
  1. OLANZAPINE [Suspect]
     Dosage: SEE IMAGE
     Route: 030
     Dates: start: 20051225, end: 20051226
  2. OLANZAPINE [Suspect]
     Dosage: SEE IMAGE
     Route: 030
     Dates: start: 20051227
  3. RISPERDAL /SWE/ (RISPERIDONE) [Concomitant]
  4. RIVOTRIL /NOR/ (CLONAZEPAM) [Concomitant]

REACTIONS (3)
  - AGITATION [None]
  - DELUSION [None]
  - PULMONARY EMBOLISM [None]
